FAERS Safety Report 7466219-0 (Version None)
Quarter: 2011Q2

REPORT INFORMATION
  Report Type: 
  Country: None (occurrence: None)
  Receive Date: 20110509
  Receipt Date: 20110425
  Transmission Date: 20111010
  Serious: Yes (Hospitalization, Other)
  Sender: FDA-Public Use
  Company Number: US-ELI_LILLY_AND_COMPANY-US201104007031

PATIENT
  Sex: Female

DRUGS (17)
  1. CYMBALTA [Suspect]
     Dosage: UNK
     Dates: end: 20110101
  2. ZANAFLEX [Concomitant]
  3. BACTRIM [Concomitant]
  4. BACLOFEN [Concomitant]
  5. FUROSEMIDE [Concomitant]
  6. REMERON                                 /USA/ [Concomitant]
  7. CYANOCOBALAMIN [Concomitant]
  8. TERAZOSIN HCL [Concomitant]
  9. TYLENOL PM [Concomitant]
  10. SIMVASTATIN [Concomitant]
  11. WELLBUTRIN [Concomitant]
  12. DANTROLENE [Concomitant]
  13. POTASSIUM CHLORIDE [Concomitant]
  14. VITAMIN D [Concomitant]
  15. IMIPRAMINE [Concomitant]
  16. OXYBUTYNIN [Concomitant]
  17. CYCLESSA [Concomitant]

REACTIONS (11)
  - MULTIPLE SCLEROSIS RELAPSE [None]
  - WEIGHT DECREASED [None]
  - OEDEMA [None]
  - CENTRAL NERVOUS SYSTEM LESION [None]
  - RENAL FAILURE [None]
  - NAUSEA [None]
  - CONVULSION [None]
  - URINARY TRACT INFECTION [None]
  - CLOSTRIDIAL INFECTION [None]
  - VOMITING [None]
  - SEPSIS [None]
